FAERS Safety Report 12602145 (Version 3)
Quarter: 2017Q1

REPORT INFORMATION
  Report Type: Spontaneous
  Country: US (occurrence: US)
  Receive Date: 20160728
  Receipt Date: 20170221
  Transmission Date: 20170428
  Serious: No
  Sender: FDA-Public Use
  Company Number: US-PFIZER INC-2016346672

PATIENT
  Age: 67 Year
  Sex: Female
  Weight: 58.96 kg

DRUGS (4)
  1. IBRANCE [Suspect]
     Active Substance: PALBOCICLIB
     Indication: BREAST CANCER METASTATIC
     Dosage: 125 MG, CYCLIC, (DAYS 1-21 Q28 DAYS)
     Route: 048
     Dates: start: 20160120
  2. LETROZOLE. [Concomitant]
     Active Substance: LETROZOLE
     Dosage: 2.5 MG, DAILY
  3. IBRANCE [Suspect]
     Active Substance: PALBOCICLIB
     Dosage: 125 MG, CYCLIC (DAYS 1-21 Q28 DAYS)
     Route: 048
     Dates: start: 20160120
  4. IBRANCE [Suspect]
     Active Substance: PALBOCICLIB
     Dosage: 125 MG, CYCLIC (DAYS 1-21 Q28 DAYS)
     Route: 048
     Dates: start: 20160120

REACTIONS (8)
  - Asthenia [Not Recovered/Not Resolved]
  - Haemoglobin decreased [Unknown]
  - Nausea [Unknown]
  - Rhinorrhoea [Unknown]
  - Platelet count decreased [Unknown]
  - Alopecia [Not Recovered/Not Resolved]
  - White blood cell count decreased [Unknown]
  - Hypersomnia [Unknown]
